FAERS Safety Report 9966909 (Version 2)
Quarter: 2014Q1

REPORT INFORMATION
  Report Type: Report from Study
  Country: US (occurrence: US)
  Receive Date: 20140305
  Receipt Date: 20140305
  Transmission Date: 20141002
  Serious: No
  Sender: FDA-Public Use
  Company Number: US-ABBVIE-13P-163-1079797-00

PATIENT
  Age: 72 Year
  Sex: Female
  Weight: 71.28 kg

DRUGS (15)
  1. HUMIRA [Suspect]
     Indication: AUTOIMMUNE DISORDER
     Route: 058
     Dates: start: 20130422
  2. HUMIRA [Suspect]
     Indication: RHEUMATOID ARTHRITIS
  3. METHOTREXATE [Concomitant]
     Indication: AUTOIMMUNE DISORDER
  4. FOLIC ACID [Concomitant]
     Indication: VITAMIN SUPPLEMENTATION
     Route: 048
  5. PREDNISONE [Concomitant]
     Indication: AUTOIMMUNE DISORDER
     Dates: end: 20130422
  6. INSULIN [Concomitant]
     Indication: DIABETES MELLITUS
     Dosage: VIA INSULIN PUMP
  7. TRAMADOL [Concomitant]
     Indication: AUTOIMMUNE DISORDER
     Route: 030
  8. NORCO [Concomitant]
     Indication: AUTOIMMUNE DISORDER
  9. METFORMIN [Concomitant]
     Indication: DIABETES MELLITUS
  10. SIMVASTATIN [Concomitant]
     Indication: BLOOD CHOLESTEROL INCREASED
  11. LOSARTAN [Concomitant]
     Indication: HYPERTENSION
     Dosage: IN AM
  12. DILTIAZEM [Concomitant]
     Indication: HYPERTENSION
     Dosage: AT NIGHT
  13. IRON COMPLEX [Concomitant]
     Indication: ANAEMIA
  14. OMEPRAZOLE [Concomitant]
     Indication: GASTROOESOPHAGEAL REFLUX DISEASE
  15. ASPIRIN [Concomitant]
     Indication: PROPHYLAXIS

REACTIONS (11)
  - Wrong technique in drug usage process [Recovered/Resolved]
  - Injection site pain [Not Recovered/Not Resolved]
  - Off label use [Unknown]
  - Pain in extremity [Not Recovered/Not Resolved]
  - Local swelling [Not Recovered/Not Resolved]
  - Pain in jaw [Not Recovered/Not Resolved]
  - Gastrooesophageal reflux disease [Not Recovered/Not Resolved]
  - Injection site pain [Recovered/Resolved]
  - Injection site pain [Recovered/Resolved]
  - Injection site pain [Recovered/Resolved]
  - Contusion [Recovering/Resolving]
